FAERS Safety Report 6060226-0 (Version None)
Quarter: 2009Q1

REPORT INFORMATION
  Report Type: 
  Country: None (occurrence: None)
  Receive Date: 20090129
  Receipt Date: 20090112
  Transmission Date: 20090719
  Serious: Yes (Hospitalization)
  Sender: FDA-Public Use
  Company Number: 8039687

PATIENT
  Age: 30 Year
  Sex: Female

DRUGS (2)
  1. KEPPRA [Suspect]
     Indication: POST-TRAUMATIC EPILEPSY
     Dosage: 2 G 2/D
     Dates: start: 20080501, end: 20081201
  2. VALPROATE SODIUM [Concomitant]

REACTIONS (3)
  - MYOCLONIC EPILEPSY [None]
  - SOMNOLENCE [None]
  - STATUS EPILEPTICUS [None]
